FAERS Safety Report 6870626-4 (Version None)
Quarter: 2010Q3

REPORT INFORMATION
  Report Type: 
  Country: None (occurrence: None)
  Receive Date: 20100723
  Receipt Date: 20100715
  Transmission Date: 20110219
  Serious: Yes (Other)
  Sender: FDA-Public Use
  Company Number: CA-BRACCO-000250

PATIENT
  Age: 69 Year
  Sex: Female

DRUGS (3)
  1. ISOVUE-370 [Suspect]
     Indication: AORTIC ANEURYSM
     Route: 042
     Dates: start: 20100629, end: 20100629
  2. ISOVUE-370 [Suspect]
     Indication: ANGIOGRAM
     Route: 042
     Dates: start: 20100629, end: 20100629
  3. ISOVUE-370 [Suspect]
     Indication: FEMORAL ARTERY OCCLUSION
     Route: 042
     Dates: start: 20100629, end: 20100629

REACTIONS (6)
  - BLOOD PRESSURE IMMEASURABLE [None]
  - DEPRESSED LEVEL OF CONSCIOUSNESS [None]
  - ERYTHEMA [None]
  - HEART RATE INCREASED [None]
  - MYDRIASIS [None]
  - STARING [None]
